FAERS Safety Report 9564993 (Version 3)
Quarter: 2014Q1

REPORT INFORMATION
  Report Type: Report from Study
  Country: DE (occurrence: DE)
  Receive Date: 20130930
  Receipt Date: 20140117
  Transmission Date: 20141002
  Serious: Yes (Other)
  Sender: FDA-Public Use
  Company Number: DE-JNJFOC-20130915372

PATIENT
  Age: 40 Year
  Sex: Male

DRUGS (2)
  1. STELARA [Suspect]
     Indication: PSORIASIS
     Route: 058
     Dates: start: 20100519
  2. ROXITHROMYCIN [Concomitant]
     Route: 065
     Dates: start: 20121113, end: 20121126

REACTIONS (1)
  - Pneumonia [Recovered/Resolved]
